FAERS Safety Report 6953758-1 (Version None)
Quarter: 2010Q3

REPORT INFORMATION
  Report Type: 
  Country: None (occurrence: None)
  Receive Date: 20100829
  Receipt Date: 20100618
  Transmission Date: 20110219
  Serious: No
  Sender: FDA-Public Use
  Company Number: US-ABBOTT-10P-163-0653317-00

PATIENT
  Sex: Female
  Weight: 54.026 kg

DRUGS (3)
  1. NIASPAN [Suspect]
     Indication: HIGH DENSITY LIPOPROTEIN DECREASED
     Dates: start: 20100301
  2. DILTIAZEM HYDROCHLORIDE [Concomitant]
     Indication: ATRIAL FIBRILLATION
  3. DIGOXIN [Concomitant]
     Indication: ATRIAL FIBRILLATION

REACTIONS (2)
  - BLOOD TRIGLYCERIDES INCREASED [None]
  - LOW DENSITY LIPOPROTEIN INCREASED [None]
